FAERS Safety Report 12407614 (Version 1)
Quarter: 2016Q2

REPORT INFORMATION
  Report Type: Other
  Country: JP (occurrence: JP)
  Receive Date: 20160526
  Receipt Date: 20160526
  Transmission Date: 20160815
  Serious: Yes (Disabling)
  Sender: FDA-Public Use
  Company Number: JP-GUERBET LLC-1052845

PATIENT
  Age: 40 Year
  Sex: Female

DRUGS (2)
  1. LIPIODOL [Suspect]
     Active Substance: ETHIODIZED OIL
     Indication: THERAPEUTIC EMBOLISATION
     Route: 013
  2. HISTOACRYL(ENBUCRILATE) [Concomitant]
     Route: 013

REACTIONS (1)
  - Uterine necrosis [Recovering/Resolving]
